FAERS Safety Report 19989154 (Version 3)
Quarter: 2022Q2

REPORT INFORMATION
  Report Type: Spontaneous
  Country: US (occurrence: US)
  Receive Date: 20211025
  Receipt Date: 20220616
  Transmission Date: 20220721
  Serious: No
  Sender: FDA-Public Use
  Company Number: US-SA-SAC20211016000296

PATIENT
  Age: 36 Year
  Sex: Female

DRUGS (57)
  1. DUPIXENT [Suspect]
     Active Substance: DUPILUMAB
     Indication: Asthma
     Dosage: 300 MG, QOW
     Route: 058
     Dates: start: 20200924
  2. ADVAIR HFA [Concomitant]
     Active Substance: FLUTICASONE PROPIONATE\SALMETEROL XINAFOATE
     Dosage: UNK
  3. ALBUTEROL [Concomitant]
     Active Substance: ALBUTEROL
     Dosage: UNK
  4. ALPRAZOLAM [Concomitant]
     Active Substance: ALPRAZOLAM
     Dosage: UNK
  5. APAP/CODEINE [CODEINE PHOSPHATE;PARACETAMOL] [Concomitant]
     Dosage: UNK
  6. HYDROMED [Concomitant]
     Dosage: UNK
  7. AZITHROMYCIN [Concomitant]
     Active Substance: AZITHROMYCIN
     Dosage: UNK
  8. BREO ELLIPTA [Concomitant]
     Active Substance: FLUTICASONE FUROATE\VILANTEROL TRIFENATATE
     Dosage: UNK
  9. EPIPEN [Concomitant]
     Active Substance: EPINEPHRINE
     Dosage: UNK
  10. FLUTICASONE [Concomitant]
     Active Substance: FLUTICASONE
     Dosage: UNK
  11. FLUTICASONE [Concomitant]
     Active Substance: FLUTICASONE
  12. LEVAQUIN [Concomitant]
     Active Substance: LEVOFLOXACIN
     Dosage: UNK
  13. LEVAQUIN [Concomitant]
     Active Substance: LEVOFLOXACIN
  14. PROMETHAZINE [Concomitant]
     Active Substance: PROMETHAZINE HYDROCHLORIDE
     Dosage: UNK
  15. VERAPAMIL [Concomitant]
     Active Substance: VERAPAMIL HYDROCHLORIDE
     Dosage: UNK
  16. VERAPAMIL [Concomitant]
     Active Substance: VERAPAMIL HYDROCHLORIDE
  17. VIGAMOX [Concomitant]
     Active Substance: MOXIFLOXACIN HYDROCHLORIDE
     Dosage: UNK
  18. VIGAMOX [Concomitant]
     Active Substance: MOXIFLOXACIN HYDROCHLORIDE
  19. MUCINEX [Concomitant]
     Active Substance: GUAIFENESIN
     Dosage: UNK
  20. MUCINEX [Concomitant]
     Active Substance: GUAIFENESIN
  21. ACYCLOVIR [Concomitant]
     Active Substance: ACYCLOVIR
     Dosage: UNK
  22. HYDROCODONE BITARTRATE AND ACETAMINOPHEN [Concomitant]
     Active Substance: ACETAMINOPHEN\HYDROCODONE BITARTRATE
     Dosage: UNK
  23. METHYLPREDNISOLONE [Concomitant]
     Active Substance: METHYLPREDNISOLONE
     Dosage: UNK
  24. METRONIDAZOLE [Concomitant]
     Active Substance: METRONIDAZOLE
     Dosage: UNK
  25. METRONIDAZOLE [Concomitant]
     Active Substance: METRONIDAZOLE
  26. PREDNISONE [Concomitant]
     Active Substance: PREDNISONE
     Dosage: UNK
  27. RELPAX [Concomitant]
     Active Substance: ELETRIPTAN HYDROBROMIDE
     Dosage: UNK
  28. RELPAX [Concomitant]
     Active Substance: ELETRIPTAN HYDROBROMIDE
  29. TOPAMAX [Concomitant]
     Active Substance: TOPIRAMATE
     Dosage: UNK
  30. TOPAMAX [Concomitant]
     Active Substance: TOPIRAMATE
  31. HYDROMET [HYDROCHLOROTHIAZIDE;METHYLDOPA] [Concomitant]
     Dosage: UNK
  32. HYDROMET [HYDROCHLOROTHIAZIDE;METHYLDOPA] [Concomitant]
  33. XOPENEX [Concomitant]
     Active Substance: LEVALBUTEROL HYDROCHLORIDE
     Dosage: UNK
  34. XOPENEX [Concomitant]
     Active Substance: LEVALBUTEROL HYDROCHLORIDE
  35. MUCINE [Concomitant]
     Dosage: UNK
  36. FLUTICASONE PROPIONATE [Concomitant]
     Active Substance: FLUTICASONE PROPIONATE
     Dosage: UNK
  37. HYDCORT [Concomitant]
     Dosage: UNK
  38. BUTALBITAL, ACETAMINOPHEN, AND CAFFEINE [Concomitant]
     Active Substance: ACETAMINOPHEN\BUTALBITAL\CAFFEINE
     Dosage: UNK
  39. CLINDAMYCIN HYDROCHLORIDE [Concomitant]
     Active Substance: CLINDAMYCIN HYDROCHLORIDE
     Dosage: UNK
  40. FLUCONAZOLE [Concomitant]
     Active Substance: FLUCONAZOLE
     Dosage: UNK
  41. FLUCONAZOLE [Concomitant]
     Active Substance: FLUCONAZOLE
  42. FLUOCINONIDE [Concomitant]
     Active Substance: FLUOCINONIDE
     Dosage: UNK
  43. FLUOCINONIDE [Concomitant]
     Active Substance: FLUOCINONIDE
  44. ACETAMINOPHEN\HYDROCODONE [Concomitant]
     Active Substance: ACETAMINOPHEN\HYDROCODONE
  45. IMITREX [Concomitant]
     Active Substance: SUMATRIPTAN SUCCINATE
     Dosage: UNK
  46. IMITREX [Concomitant]
     Active Substance: SUMATRIPTAN SUCCINATE
  47. PROAIR HFA [Concomitant]
     Active Substance: ALBUTEROL SULFATE
  48. PROAIR HFA [Concomitant]
     Active Substance: ALBUTEROL SULFATE
  49. PROMETHAZINE HYDROCHLORIDE [Concomitant]
     Active Substance: PROMETHAZINE HYDROCHLORIDE
     Dosage: UNK
  50. PROMETHAZINE HYDROCHLORIDE [Concomitant]
     Active Substance: PROMETHAZINE HYDROCHLORIDE
  51. TRIAMCINOLONE [Concomitant]
     Active Substance: TRIAMCINOLONE
     Dosage: UNK
  52. TRIAMCINOLONE [Concomitant]
     Active Substance: TRIAMCINOLONE
  53. TOPAMAX [Concomitant]
     Active Substance: TOPIRAMATE
     Dosage: UNK
  54. TRIAMCINOLONE [Concomitant]
     Active Substance: TRIAMCINOLONE
  55. TRIAMCINOLONE ACETONIDE [Concomitant]
     Active Substance: TRIAMCINOLONE ACETONIDE
     Dosage: UNK
  56. TRIAMCINOLONE ACETONIDE [Concomitant]
     Active Substance: TRIAMCINOLONE ACETONIDE
  57. TRIAMCINOLONE [Concomitant]
     Active Substance: TRIAMCINOLONE

REACTIONS (6)
  - Impaired quality of life [Not Recovered/Not Resolved]
  - Weight increased [Not Recovered/Not Resolved]
  - Asthma [Not Recovered/Not Resolved]
  - Headache [Not Recovered/Not Resolved]
  - Oral herpes [Not Recovered/Not Resolved]
  - Product dose omission issue [Unknown]

NARRATIVE: CASE EVENT DATE: 20210901
